FAERS Safety Report 4548519-7 (Version None)
Quarter: 2005Q1

REPORT INFORMATION
  Report Type: 
  Country: None (occurrence: None)
  Receive Date: 20050110
  Receipt Date: 20050105
  Transmission Date: 20050727
  Serious: Yes (Hospitalization)
  Sender: FDA-Public Use
  Company Number: FR-GLAXOSMITHKLINE-B0363551A

PATIENT
  Age: 46 Year
  Sex: Male
  Weight: 79 kg

DRUGS (6)
  1. TELZIR [Suspect]
     Indication: HIV INFECTION
     Dosage: 2UNIT PER DAY
     Route: 048
     Dates: start: 20040914, end: 20041018
  2. VIREAD [Suspect]
     Indication: HIV INFECTION
     Dosage: 1UNIT PER DAY
     Route: 048
     Dates: start: 20040914, end: 20041018
  3. EPIVIR [Concomitant]
     Indication: HIV INFECTION
     Dosage: 2UNIT PER DAY
     Route: 048
     Dates: start: 20040914
  4. NORVIR [Concomitant]
     Indication: HIV INFECTION
     Dosage: 2UNIT PER DAY
     Route: 048
     Dates: start: 20040914
  5. BACTRIM [Concomitant]
     Dosage: 1UNIT PER DAY
     Route: 048
     Dates: start: 20040914
  6. DAONIL [Concomitant]
     Indication: DIABETES MELLITUS
     Dosage: 10MG PER DAY
     Route: 048

REACTIONS (2)
  - BLOOD AMYLASE INCREASED [None]
  - LIPASE INCREASED [None]
